FAERS Safety Report 18049113 (Version 4)
Quarter: 2020Q3

REPORT INFORMATION
  Report Type: Spontaneous
  Country: US (occurrence: US)
  Receive Date: 20200721
  Receipt Date: 20200806
  Transmission Date: 20201103
  Serious: No
  Sender: FDA-Public Use
  Company Number: US-PFIZER INC-2020271686

PATIENT
  Age: 23 Year
  Sex: Male
  Weight: 76.19 kg

DRUGS (3)
  1. LECITHIN [Concomitant]
     Active Substance: LECITHIN
     Dosage: UNK
     Dates: end: 20191017
  2. XELJANZ [Suspect]
     Active Substance: TOFACITINIB CITRATE
     Indication: COLITIS ULCERATIVE
     Dosage: UNK (XELJANZ 5MG AND XELJANZ 10MG ARE BOTH SELECTED)
  3. XELJANZ [Suspect]
     Active Substance: TOFACITINIB CITRATE
     Dosage: 10 MG, 2X/DAY

REACTIONS (2)
  - Pain [Unknown]
  - Condition aggravated [Unknown]
